FAERS Safety Report 17622277 (Version 2)
Quarter: 2020Q2

REPORT INFORMATION
  Report Type: Spontaneous
  Country: US (occurrence: US)
  Receive Date: 20200403
  Receipt Date: 20200420
  Transmission Date: 20200713
  Serious: Yes (Other)
  Sender: FDA-Public Use
  Company Number: US-SA-2020SA080655

PATIENT
  Age: 78 Year
  Sex: Male

DRUGS (25)
  1. LINACLOTIDE [Suspect]
     Active Substance: LINACLOTIDE
     Dosage: 72.5 UG STOPED ON JAN-2020
  2. GOCOVRI [Suspect]
     Active Substance: AMANTADINE
     Dosage: 137 MG, HS (SPORATICALLY ALTERNATING WITH 2 CAPSULE)
     Route: 048
  3. TAMSULOSIN HYDROCHLORIDE. [Suspect]
     Active Substance: TAMSULOSIN HYDROCHLORIDE
     Indication: PRODUCT USED FOR UNKNOWN INDICATION
     Dosage: UNK
     Dates: start: 2018, end: 2019
  4. LINACLOTIDE [Suspect]
     Active Substance: LINACLOTIDE
     Indication: PRODUCT USED FOR UNKNOWN INDICATION
     Dosage: 145 UG
     Dates: start: 201908
  5. GOCOVRI [Suspect]
     Active Substance: AMANTADINE
     Dosage: 274 MG, HS (SPORATICALLY ALTERNATING WITH 1 CAPSULE)
     Route: 048
  6. GOCOVRI [Suspect]
     Active Substance: AMANTADINE
     Dosage: 274 MG, HS
     Route: 048
     Dates: start: 201908
  7. BACTRIM DS [Concomitant]
     Active Substance: SULFAMETHOXAZOLE\TRIMETHOPRIM
  8. SINEMET [Concomitant]
     Active Substance: CARBIDOPA\LEVODOPA
  9. TERAZOSIN HYDROCHLORIDE. [Suspect]
     Active Substance: TERAZOSIN HYDROCHLORIDE
     Indication: PROSTATOMEGALY
     Dosage: 10 MG, QD
  10. GOCOVRI [Suspect]
     Active Substance: AMANTADINE
     Dosage: 137 MG, HS
     Route: 048
     Dates: start: 20180912, end: 201811
  11. GOCOVRI [Suspect]
     Active Substance: AMANTADINE
     Dosage: 274 MG, HS (SPORATICALLY ALTERNATING WITH 2 CAPSULE)
     Route: 048
     Dates: start: 201908
  12. VITAMIN D3 [Concomitant]
     Active Substance: CHOLECALCIFEROL
  13. GOCOVRI [Suspect]
     Active Substance: AMANTADINE
     Dosage: 274 MG, HS
     Route: 048
     Dates: start: 201811
  14. ASPIRIN [ACETYLSALICYLIC ACID] [Concomitant]
     Active Substance: ASPIRIN
  15. FLONASE [MOMETASONE FUROATE] [Concomitant]
     Active Substance: MOMETASONE FUROATE
  16. MELATONIN [Concomitant]
     Active Substance: MELATONIN
  17. GOCOVRI [Suspect]
     Active Substance: AMANTADINE
     Dosage: 137 MG, HS
     Route: 048
     Dates: start: 201808, end: 20180912
  18. ENTACAPONE. [Concomitant]
     Active Substance: ENTACAPONE
  19. FINASTERIDE. [Concomitant]
     Active Substance: FINASTERIDE
  20. GOCOVRI [Suspect]
     Active Substance: AMANTADINE
     Dosage: 274 MG, HS
     Route: 048
     Dates: start: 20180620, end: 201808
  21. GOCOVRI [Suspect]
     Active Substance: AMANTADINE
     Dosage: 137 MG, HS (STOPPED IN AUG-2019)
     Route: 048
  22. GOCOVRI [Suspect]
     Active Substance: AMANTADINE
     Dosage: 137 MG, HS (SPORATICALLY ALTERNATING WITH 1 CAPSULE)
     Route: 048
     Dates: start: 201908
  23. GOCOVRI [Suspect]
     Active Substance: AMANTADINE
     Indication: DYSKINESIA
     Dosage: 137 MG, HS
     Route: 048
     Dates: start: 20180613, end: 20180619
  24. VITAMIN B12 [Concomitant]
     Active Substance: CYANOCOBALAMIN
  25. ALEVE [Concomitant]
     Active Substance: NAPROXEN SODIUM

REACTIONS (12)
  - Insomnia [Not Recovered/Not Resolved]
  - Benign prostatic hyperplasia [Not Recovered/Not Resolved]
  - Pain [Recovered/Resolved]
  - Therapeutic product effect decreased [Unknown]
  - Urinary retention [Unknown]
  - Dysphonia [Not Recovered/Not Resolved]
  - Anal incontinence [Not Recovered/Not Resolved]
  - Memory impairment [Not Recovered/Not Resolved]
  - Urinary tract infection [Unknown]
  - Product dose omission [Unknown]
  - Diarrhoea [Not Recovered/Not Resolved]
  - Hypotension [Not Recovered/Not Resolved]

NARRATIVE: CASE EVENT DATE: 2019
